APPROVED DRUG PRODUCT: NORETHINDRONE AND ETHINYL ESTRADIOL AND FERROUS FUMARATE
Active Ingredient: ETHINYL ESTRADIOL; NORETHINDRONE
Strength: 0.035MG;0.4MG
Dosage Form/Route: TABLET;ORAL
Application: A078965 | Product #001 | TE Code: AB
Applicant: BARR LABORATORIES INC
Approved: Aug 5, 2010 | RLD: No | RS: No | Type: RX